FAERS Safety Report 9658918 (Version 1)
Quarter: 2013Q4

REPORT INFORMATION
  Report Type: Report from Study
  Country: US (occurrence: US)
  Receive Date: 20131030
  Receipt Date: 20131030
  Transmission Date: 20140711
  Serious: Yes (Death, Hospitalization)
  Sender: FDA-Public Use
  Company Number: US-ABBVIE-13P-163-1163110-00

PATIENT
  Age: 77 Year
  Sex: Male

DRUGS (13)
  1. HUMIRA [Suspect]
     Indication: RHEUMATOID ARTHRITIS
     Dates: start: 2008, end: 2012
  2. PREDNISONE [Concomitant]
     Indication: RHEUMATOID ARTHRITIS
     Dates: start: 2012
  3. LESCOL [Concomitant]
     Indication: BLOOD CHOLESTEROL INCREASED
     Dates: start: 2012
  4. SINGULAIR [Concomitant]
     Indication: HYPERSENSITIVITY
     Dates: start: 2012
  5. COUMADIN [Concomitant]
     Indication: THROMBOSIS PROPHYLAXIS
     Dates: start: 2012
  6. METHOTREXATE [Concomitant]
     Indication: RHEUMATOID ARTHRITIS
     Dates: start: 2012
  7. NASONEX [Concomitant]
     Indication: HYPERSENSITIVITY
     Dates: start: 2012
  8. FLOMAX [Concomitant]
     Indication: BENIGN PROSTATIC HYPERPLASIA
     Dates: start: 2012
  9. TOPROL [Concomitant]
     Indication: ATRIAL FIBRILLATION
     Dates: start: 2012
  10. NEURONTIN [Concomitant]
     Indication: PAIN
     Dates: start: 2012
  11. FOLIC ACID [Concomitant]
     Indication: VITAMIN SUPPLEMENTATION
     Dates: start: 2012
  12. DIAZIDE [Concomitant]
     Indication: FLUID RETENTION
     Dates: start: 2012
  13. NIACIN [Concomitant]
     Indication: SUPPLEMENTATION THERAPY

REACTIONS (2)
  - Delirium [Recovered/Resolved]
  - Bacterial infection [Fatal]
